FAERS Safety Report 9638269 (Version 1)
Quarter: 2013Q4

REPORT INFORMATION
  Report Type: Spontaneous
  Country: US (occurrence: US)
  Receive Date: 20131022
  Receipt Date: 20131022
  Transmission Date: 20140711
  Serious: Yes (Other)
  Sender: FDA-Public Use
  Company Number: US-PFIZER INC-2013301416

PATIENT
  Sex: Male

DRUGS (4)
  1. ADVIL MIGRAINE [Suspect]
     Dosage: 200 MG, UNK
     Route: 048
  2. ADVIL MIGRAINE [Suspect]
     Dosage: 400 MG (BY TAKING TWO CAPSULES OF 200MG), EVERY 4-6 HOURS
     Route: 048
  3. ADVIL MIGRAINE [Suspect]
     Dosage: 6-8 CAPSULES OF 200MG IN A 24 HOUR PERIOD
     Route: 048
  4. ADVIL MIGRAINE [Suspect]
     Dosage: UNK
     Route: 048

REACTIONS (2)
  - Overdose [Unknown]
  - Haematochezia [Unknown]
